FAERS Safety Report 8783025 (Version 1)
Quarter: 2012Q4

REPORT INFORMATION
  Report Type: 
  Country: US (occurrence: US)
  Receive Date: 20120913
  Receipt Date: 20120913
  Transmission Date: 20130627
  Serious: No
  Sender: FDA-Public Use
  Company Number: US-ASTRAZENECA-2012SE69162

PATIENT
  Age: 55 Year
  Sex: Male
  Weight: 88.5 kg

DRUGS (6)
  1. SYMBICORT PMDI [Suspect]
     Indication: CHRONIC OBSTRUCTIVE PULMONARY DISEASE
     Dosage: 80/4.5 MCG,TWO PUFFS TWICE A DAY
     Route: 055
     Dates: start: 201205
  2. SYMBICORT PMDI [Suspect]
     Indication: CHRONIC OBSTRUCTIVE PULMONARY DISEASE
     Dosage: 80/4.5 MCG,ONE PUFF TWICE A DAY
     Route: 055
  3. SYMBICORT PMDI [Suspect]
     Indication: CHRONIC OBSTRUCTIVE PULMONARY DISEASE
     Dosage: 80/4.5 MCG,TWO PUFFS TWICE A DAY
     Route: 055
  4. VENTOLIN [Concomitant]
  5. SINGULAIR [Concomitant]
  6. PEPCID [Concomitant]
     Indication: GASTROOESOPHAGEAL REFLUX DISEASE

REACTIONS (4)
  - Gastric disorder [Not Recovered/Not Resolved]
  - Nervousness [Recovered/Resolved]
  - Palpitations [Recovered/Resolved]
  - Intentional drug misuse [Unknown]
